FAERS Safety Report 4766390-5 (Version None)
Quarter: 2005Q3

REPORT INFORMATION
  Report Type: 
  Country: None (occurrence: None)
  Receive Date: 20050912
  Receipt Date: 20050831
  Transmission Date: 20060218
  Serious: Yes (Hospitalization)
  Sender: FDA-Public Use
  Company Number: FR-SANOFI-SYNTHELABO-F01200501765

PATIENT
  Sex: Male
  Weight: 78 kg

DRUGS (5)
  1. OXALIPLATIN [Suspect]
     Indication: COLORECTAL CANCER
     Dosage: 130 MG
     Route: 042
     Dates: start: 20050614, end: 20050614
  2. CAPECITABINE [Suspect]
     Indication: COLORECTAL CANCER
     Dosage: TWICE DAILY FOR 2 WEEKS, Q3W 2300 MG
     Route: 048
     Dates: start: 20050614, end: 20050627
  3. LANTUS [Concomitant]
     Indication: DIABETES MELLITUS
     Dosage: 32 UNK
  4. HUMALOG [Concomitant]
     Indication: DIABETES MELLITUS
     Dosage: UNK
  5. ACTRAPID [Concomitant]
     Indication: DIABETES MELLITUS
     Dosage: UNKNOWN

REACTIONS (6)
  - DIARRHOEA [None]
  - GENERAL PHYSICAL HEALTH DETERIORATION [None]
  - LOSS OF CONSCIOUSNESS [None]
  - MALAISE [None]
  - PYREXIA [None]
  - VOMITING [None]
